FAERS Safety Report 4967696-7 (Version None)
Quarter: 2006Q2

REPORT INFORMATION
  Report Type: 
  Country: None (occurrence: None)
  Receive Date: 20060405
  Receipt Date: 20060327
  Transmission Date: 20061013
  Serious: Yes (Hospitalization, Other)
  Sender: FDA-Public Use
  Company Number: USA-2006-0023789

PATIENT
  Age: 16 Year
  Sex: Female

DRUGS (1)
  1. THEOPHYLLINE [Suspect]
     Indication: INTENTIONAL DRUG MISUSE
     Dosage: 7.5 GRAM, ORAL
     Route: 048

REACTIONS (35)
  - ALANINE AMINOTRANSFERASE INCREASED [None]
  - ARRHYTHMIA SUPRAVENTRICULAR [None]
  - ASPARTATE AMINOTRANSFERASE INCREASED [None]
  - BLOOD CREATINE PHOSPHOKINASE INCREASED [None]
  - BLOOD GLUCOSE INCREASED [None]
  - BLOOD LACTATE DEHYDROGENASE INCREASED [None]
  - BRAIN OEDEMA [None]
  - CARDIAC ARREST [None]
  - DERMOGRAPHISM [None]
  - DRUG LEVEL INCREASED [None]
  - DRUG TOXICITY [None]
  - DYSPNOEA [None]
  - ELECTROCARDIOGRAM QRS COMPLEX SHORTENED [None]
  - ELECTROCARDIOGRAM T WAVE AMPLITUDE DECREASED [None]
  - GRAND MAL CONVULSION [None]
  - HAEMATOCRIT DECREASED [None]
  - HAEMODIALYSIS [None]
  - HAEMOGLOBIN DECREASED [None]
  - HYPERAESTHESIA [None]
  - HYPOKALAEMIA [None]
  - HYPOTENSION [None]
  - HYPOTONIA [None]
  - INTENTIONAL OVERDOSE [None]
  - LOSS OF CONSCIOUSNESS [None]
  - METABOLIC ACIDOSIS [None]
  - NAUSEA [None]
  - POOR PERIPHERAL CIRCULATION [None]
  - RED BLOOD CELL COUNT DECREASED [None]
  - SHOCK [None]
  - SUICIDE ATTEMPT [None]
  - SUPRAVENTRICULAR EXTRASYSTOLES [None]
  - TACHYCARDIA [None]
  - TREMOR [None]
  - VENTRICULAR FIBRILLATION [None]
  - VOMITING [None]
